FAERS Safety Report 11753358 (Version 1)
Quarter: 2015Q4

REPORT INFORMATION
  Report Type: Report from Study
  Country: US (occurrence: US)
  Receive Date: 20151119
  Receipt Date: 20151119
  Transmission Date: 20160304
  Serious: Yes (Death, Hospitalization)
  Sender: FDA-Public Use
  Company Number: US-ROCHE-1662548

PATIENT
  Age: 51 Year
  Sex: Male

DRUGS (3)
  1. BEVACIZUMAB [Suspect]
     Active Substance: BEVACIZUMAB
     Indication: HEAD AND NECK CANCER METASTATIC
     Dosage: OVER 30-90 MIN, DAY 1
     Route: 042
     Dates: start: 20090609
  2. FENTANYL. [Suspect]
     Active Substance: FENTANYL
     Indication: PRODUCT USED FOR UNKNOWN INDICATION
     Dosage: DOSE: 25 MCG/HR PATCH
     Route: 065
     Dates: start: 20090618
  3. OXYCODONE [Suspect]
     Active Substance: OXYCODONE
     Indication: PRODUCT USED FOR UNKNOWN INDICATION
     Route: 065

REACTIONS (2)
  - Cerebral ischaemia [Fatal]
  - Confusional state [Fatal]

NARRATIVE: CASE EVENT DATE: 20090620
